FAERS Safety Report 7677669-1 (Version None)
Quarter: 2011Q3

REPORT INFORMATION
  Report Type: 
  Country: None (occurrence: None)
  Receive Date: 20110811
  Receipt Date: 20110803
  Transmission Date: 20111222
  Serious: Yes (Other)
  Sender: FDA-Public Use
  Company Number: PHHO2010FR17847

PATIENT
  Sex: Male
  Weight: 103 kg

DRUGS (3)
  1. FTY [Suspect]
     Indication: MULTIPLE SCLEROSIS
     Dosage: CODE NOT BROKEN
     Route: 048
     Dates: start: 20080506
  2. FTY [Suspect]
     Dosage: 0.5 MG, QD
     Route: 048
     Dates: start: 20100429
  3. DIOSMINE [Concomitant]
     Indication: SENSATION OF HEAVINESS

REACTIONS (1)
  - BASAL CELL CARCINOMA [None]
